FAERS Safety Report 13928233 (Version 1)
Quarter: 2017Q3

REPORT INFORMATION
  Report Type: Spontaneous
  Country: SE (occurrence: SE)
  Receive Date: 20170901
  Receipt Date: 20170901
  Transmission Date: 20171127
  Serious: Yes (Hospitalization)
  Sender: FDA-Public Use
  Company Number: SE-ABBVIE-17P-150-2089602-00

PATIENT
  Sex: Female

DRUGS (2)
  1. CREON [Suspect]
     Active Substance: PANCRELIPASE AMYLASE\PANCRELIPASE LIPASE\PANCRELIPASE PROTEASE
     Indication: ABDOMINAL PAIN UPPER
     Dosage: 15 DF, QD
     Route: 048
     Dates: start: 1997
  2. CREON [Suspect]
     Active Substance: PANCRELIPASE AMYLASE\PANCRELIPASE LIPASE\PANCRELIPASE PROTEASE
     Dosage: 4-5 CAPSULES, QD
     Route: 048

REACTIONS (4)
  - Gastric dilatation [Unknown]
  - Gastric neoplasm [Unknown]
  - Diarrhoea [Unknown]
  - Nausea [Unknown]
